FAERS Safety Report 9961713 (Version 1)
Quarter: 2014Q1

REPORT INFORMATION
  Report Type: Report from Study
  Country: US (occurrence: US)
  Receive Date: 20140305
  Receipt Date: 20140305
  Transmission Date: 20141002
  Serious: No
  Sender: FDA-Public Use
  Company Number: US-ABBVIE-13P-163-1113210-00

PATIENT
  Age: 22 Year
  Sex: Male

DRUGS (6)
  1. HUMIRA [Suspect]
     Indication: CROHN^S DISEASE
     Dates: start: 20130516
  2. LORTAB [Concomitant]
     Indication: PAIN
     Dosage: TWICE A DAY AS NEEDED
  3. XANAX [Concomitant]
     Indication: PANIC ATTACK
     Dosage: 0.5 MG TWICE A DAY AS NEEDED
  4. XANAX [Concomitant]
     Indication: ANGER
  5. HYOSCYAMINE [Concomitant]
     Indication: ABDOMINAL PAIN UPPER
  6. PROAIR HFA [Concomitant]
     Indication: ASTHMA

REACTIONS (2)
  - Headache [Not Recovered/Not Resolved]
  - Crohn^s disease [Unknown]
